FAERS Safety Report 21997590 (Version 1)
Quarter: 2023Q1

REPORT INFORMATION
  Report Type: Spontaneous
  Country: IN (occurrence: IN)
  Receive Date: 20230216
  Receipt Date: 20230216
  Transmission Date: 20230418
  Serious: Yes (Hospitalization, Other)
  Sender: FDA-Public Use
  Company Number: IN-MACLEODS PHARMA EU LTD-MAC2023039759

PATIENT

DRUGS (2)
  1. TENOFOVIR [Suspect]
     Active Substance: TENOFOVIR
     Indication: HIV infection
     Dosage: UNK
     Route: 065
  2. Lamivudine/ efavirenz [Concomitant]
     Indication: HIV infection
     Dosage: UNK
     Route: 065

REACTIONS (2)
  - Addison^s disease [Recovered/Resolved]
  - Fanconi syndrome [Recovered/Resolved]
